FAERS Safety Report 10187108 (Version 3)
Quarter: 2014Q3

REPORT INFORMATION
  Report Type: Spontaneous
  Country: US (occurrence: US)
  Receive Date: 20140522
  Receipt Date: 20140702
  Transmission Date: 20150326
  Serious: No
  Sender: FDA-Public Use
  Company Number: US-009507513-1405USA009494

PATIENT
  Age: 26 Year
  Sex: Female
  Weight: 57.6 kg

DRUGS (2)
  1. VITAMINS (UNSPECIFIED) [Suspect]
     Active Substance: VITAMINS
  2. NEXPLANON [Suspect]
     Active Substance: ETONOGESTREL
     Indication: CONTRACEPTION
     Dosage: 1 ROD , UNKNOWN
     Route: 059
     Dates: start: 20140204, end: 20140227

REACTIONS (1)
  - Maternal exposure during pregnancy [Unknown]

NARRATIVE: CASE EVENT DATE: 20140204
